FAERS Safety Report 24594553 (Version 3)
Quarter: 2024Q4

REPORT INFORMATION
  Report Type: Spontaneous
  Country: US (occurrence: US)
  Receive Date: 20241108
  Receipt Date: 20241210
  Transmission Date: 20250115
  Serious: No
  Sender: CSL BEHRING
  Company Number: US-BEH-2024182887

PATIENT
  Age: 58 Year
  Sex: Female

DRUGS (18)
  1. HIZENTRA [Suspect]
     Active Substance: HUMAN IMMUNOGLOBULIN G
     Indication: Immunodeficiency
     Dosage: 10G/50ML QOW
     Route: 058
     Dates: start: 20200123
  2. ADVAIR HFA [Concomitant]
     Active Substance: FLUTICASONE PROPIONATE\SALMETEROL XINAFOATE
     Dosage: 230/21
  3. ALBUTEROL SULFATE [Concomitant]
     Active Substance: ALBUTEROL SULFATE
     Dosage: 2MG/5ML
  4. CELEBREX [Concomitant]
     Active Substance: CELECOXIB
     Dosage: 200 MG
  5. CYCLOBENZAPRINE [Concomitant]
     Active Substance: CYCLOBENZAPRINE
     Dosage: 7.5 MG
  6. ESTRADIOL [Concomitant]
     Active Substance: ESTRADIOL
     Dosage: 2 MG
  7. GABAPENTIN [Concomitant]
     Active Substance: GABAPENTIN
     Dosage: 600 MG
  8. HOMATROPINE METHYLBROMIDE\HYDROCODONE BITARTRATE [Concomitant]
     Active Substance: HOMATROPINE METHYLBROMIDE\HYDROCODONE BITARTRATE
  9. LEVOTHYROXINE [Concomitant]
     Active Substance: LEVOTHYROXINE
     Dosage: 25 ?G
  10. LISINOPRIL [Concomitant]
     Active Substance: LISINOPRIL
     Dosage: 2.5 MG
  11. MODAFINIL [Concomitant]
     Active Substance: MODAFINIL
     Dosage: 100 MG
  12. Mucinex cold + flu [Concomitant]
  13. SINGULAIR [Concomitant]
     Active Substance: MONTELUKAST SODIUM
     Dosage: 10 MG
  14. SPIRONOLACTONE [Concomitant]
     Active Substance: SPIRONOLACTONE
     Dosage: 25 MG
  15. VITAMIN D3 [Concomitant]
     Active Substance: CHOLECALCIFEROL
     Dosage: 2000 IU
  16. ZETIA [Concomitant]
     Active Substance: EZETIMIBE
     Dosage: 10 MG
  17. B12 [Concomitant]
     Dosage: 500 MG
  18. CYMBALTA [Concomitant]
     Active Substance: DULOXETINE HYDROCHLORIDE
     Dosage: 20 MG

REACTIONS (1)
  - Injection site pruritus [Not Recovered/Not Resolved]
